FAERS Safety Report 5030705-3 (Version None)
Quarter: 2006Q2

REPORT INFORMATION
  Report Type: 
  Country: None (occurrence: None)
  Receive Date: 20060615
  Receipt Date: 20060608
  Transmission Date: 20061013
  Serious: Yes (Other)
  Sender: FDA-Public Use
  Company Number: 2006073256

PATIENT
  Age: 58 Year
  Sex: Male

DRUGS (8)
  1. ZOLOFT [Suspect]
     Indication: ILL-DEFINED DISORDER
     Dosage: 100 MG (100 MG, 1 IN 1 D), ORAL
     Route: 048
     Dates: start: 19960101
  2. REPAGLINIDE [Suspect]
     Indication: DIABETES MELLITUS
     Dosage: 2 MG (1 MG, 2 IN 1 D), ORAL
     Route: 048
     Dates: start: 20060501
  3. ALTACE [Concomitant]
  4. ATACAND [Concomitant]
  5. METFORMIN [Concomitant]
  6. INDAPAMIDE [Concomitant]
  7. ASAPHEN (ACETYLSALICYLIC ACID) [Concomitant]
  8. NORVASC [Concomitant]

REACTIONS (4)
  - DRUG EFFECT DECREASED [None]
  - DRUG INTERACTION [None]
  - DUODENECTOMY [None]
  - SMALL INTESTINE OPERATION [None]
